FAERS Safety Report 16529147 (Version 1)
Quarter: 2019Q3

REPORT INFORMATION
  Report Type: Spontaneous
  Country: US (occurrence: US)
  Receive Date: 20190704
  Receipt Date: 20190704
  Transmission Date: 20191004
  Serious: No
  Sender: FDA-Public Use
  Company Number: US-GW PHARMA-201903USGW0803

PATIENT

DRUGS (7)
  1. EPIDIOLEX [Suspect]
     Active Substance: CANNABIDIOL
     Dosage: 280 MILLIGRAM, BID (10.3 MG/KG)
     Route: 048
     Dates: start: 201903, end: 2019
  2. DEPAKOTE [Concomitant]
     Active Substance: DIVALPROEX SODIUM
     Indication: SEIZURE
     Dosage: 500 MG, BID
     Route: 065
     Dates: start: 20190227
  3. VALIUM [Concomitant]
     Active Substance: DIAZEPAM
     Indication: SEIZURE
     Dosage: 5 MG, PRN
     Route: 065
     Dates: start: 20190227
  4. BANZEL [Concomitant]
     Active Substance: RUFINAMIDE
     Indication: SEIZURE
     Dosage: 200 MG, BID
     Route: 065
     Dates: start: 20190227
  5. LYRICA [Concomitant]
     Active Substance: PREGABALIN
     Indication: SEIZURE
     Dosage: 75 MG, BID
     Route: 065
     Dates: start: 20190227
  6. EPIDIOLEX [Suspect]
     Active Substance: CANNABIDIOL
     Indication: LENNOX-GASTAUT SYNDROME
     Dosage: 140 MILLIGRAM, BID (5.14 MG/KG)
     Route: 048
     Dates: start: 20190228, end: 201903
  7. EPIDIOLEX [Suspect]
     Active Substance: CANNABIDIOL
     Dosage: DOSE LOWERED
     Route: 048
     Dates: start: 20190502

REACTIONS (3)
  - Generalised tonic-clonic seizure [Unknown]
  - Psychomotor hyperactivity [Unknown]
  - Aggression [Not Recovered/Not Resolved]

NARRATIVE: CASE EVENT DATE: 20190326
